FAERS Safety Report 8874150 (Version 1)
Quarter: 2012Q4

REPORT INFORMATION
  Report Type: 
  Country: US (occurrence: US)
  Receive Date: 20121031
  Receipt Date: 20121031
  Transmission Date: 20130627
  Serious: Yes (Hospitalization)
  Sender: FDA-Public Use
  Company Number: US-AMGEN-USASP2012068645

PATIENT
  Sex: Male

DRUGS (2)
  1. ENBREL [Suspect]
     Indication: RHEUMATOID ARTHRITIS
     Dosage: 50 mg, qwk
     Dates: start: 20070101
  2. METHOTREXATE [Concomitant]
     Dosage: 2.5 mg, qwk, (taking 9 tablets)
     Dates: start: 2003

REACTIONS (3)
  - Cardiac disorder [Recovered/Resolved]
  - Coronary arterial stent insertion [Recovered/Resolved]
  - Arthritis [Not Recovered/Not Resolved]
